FAERS Safety Report 10652538 (Version 1)
Quarter: 2014Q4

REPORT INFORMATION
  Report Type: Spontaneous
  Country: GB (occurrence: GB)
  Receive Date: 20141215
  Receipt Date: 20141215
  Transmission Date: 20150529
  Serious: Yes (Life-Threatening)
  Sender: FDA-Public Use
  Company Number: GB-GALEN LIMITED-AE-2014/0807

PATIENT
  Age: 44 Year
  Sex: Male

DRUGS (2)
  1. HAART [Concomitant]
     Route: 048
     Dates: start: 20060116
  2. DAUNOXOME [Suspect]
     Active Substance: DAUNORUBICIN CITRATE
     Indication: KAPOSI^S SARCOMA AIDS RELATED
     Dates: start: 20060217, end: 20060626

REACTIONS (1)
  - Hodgkin^s disease [Unknown]

NARRATIVE: CASE EVENT DATE: 20091001
